FAERS Safety Report 4453034-5 (Version None)
Quarter: 2004Q3

REPORT INFORMATION
  Report Type: 
  Country: None (occurrence: None)
  Receive Date: 20040916
  Receipt Date: 20040916
  Transmission Date: 20050211
  Serious: Yes (Life-Threatening)
  Sender: FDA-Public Use
  Company Number: None

PATIENT
  Age: 61 Year
  Sex: Male
  Weight: 113.3993 kg

DRUGS (2)
  1. PROTAMINE SULFATE [Suspect]
     Indication: CARDIAC OPERATION
     Dosage: ONE TIME INTRAVENOUS
     Route: 042
     Dates: start: 20040914, end: 20040914
  2. PROTAMINE SULFATE [Suspect]

REACTIONS (4)
  - ANAPHYLACTOID REACTION [None]
  - BLOOD PRESSURE DECREASED [None]
  - HEART RATE DECREASED [None]
  - PHARMACEUTICAL PRODUCT COMPLAINT [None]
